FAERS Safety Report 4388141-9 (Version None)
Quarter: 2004Q2

REPORT INFORMATION
  Report Type: 
  Country: None (occurrence: None)
  Receive Date: 20040625
  Receipt Date: 20040622
  Transmission Date: 20050107
  Serious: Yes (Hospitalization)
  Sender: FDA-Public Use
  Company Number: HQWYE611323JUN04

PATIENT
  Age: 51 Year
  Sex: Female
  Weight: 56.3 kg

DRUGS (6)
  1. PREMARIN [Suspect]
     Indication: OESTROGEN REPLACEMENT THERAPY
     Dosage: 1.25MG ONCE DAILY, ORAL
     Route: 048
     Dates: start: 19910101, end: 20030101
  2. ALBUTEROL [Concomitant]
  3. IPRATROPIUM BROMIDE [Concomitant]
  4. SEREVENT [Concomitant]
  5. FLOVENT [Concomitant]
  6. AYGESTIN [Concomitant]

REACTIONS (6)
  - HOT FLUSH [None]
  - INSOMNIA [None]
  - MALIGNANT MELANOMA [None]
  - PAIN IN EXTREMITY [None]
  - SMEAR CERVIX ABNORMAL [None]
  - UTERINE HAEMORRHAGE [None]
